FAERS Safety Report 21807801 (Version 4)
Quarter: 2023Q4

REPORT INFORMATION
  Report Type: Report from Study
  Country: None (occurrence: CN)
  Receive Date: 20230103
  Receipt Date: 20231007
  Transmission Date: 20240109
  Serious: Yes (Hospitalization)
  Sender: FDA-Public Use
  Company Number: CN-Jiangsu Hengrui Medicine Co., Ltd.-2136350

PATIENT
  Age: 42 Year
  Sex: Female
  Weight: 69 kg

DRUGS (5)
  1. CYCLOPHOSPHAMIDE [Suspect]
     Active Substance: CYCLOPHOSPHAMIDE
     Indication: Invasive breast carcinoma
     Route: 041
     Dates: start: 20221122, end: 20230128
  2. CAMRELIZUMAB [Suspect]
     Active Substance: CAMRELIZUMAB
     Route: 041
     Dates: start: 20220722, end: 20221215
  3. PACLITAXEL [Suspect]
     Active Substance: PACLITAXEL
     Route: 041
     Dates: start: 20220722, end: 20221107
  4. CARBOPLATIN [Suspect]
     Active Substance: CARBOPLATIN
     Route: 041
     Dates: start: 20220722, end: 20221107
  5. EPIRUBICIN HYDROCHLORIDE [Suspect]
     Active Substance: EPIRUBICIN HYDROCHLORIDE
     Route: 041
     Dates: start: 20221122, end: 20230128

REACTIONS (4)
  - White blood cell count decreased [Recovered/Resolved]
  - Platelet count decreased [Recovered/Resolved]
  - Febrile neutropenia [Recovered/Resolved]
  - Bacteraemia [Recovered/Resolved]

NARRATIVE: CASE EVENT DATE: 20221223
